FAERS Safety Report 21076285 (Version 1)
Quarter: 2022Q3

REPORT INFORMATION
  Report Type: Spontaneous
  Country: US (occurrence: None)
  Receive Date: 20220713
  Receipt Date: 20220713
  Transmission Date: 20221027
  Serious: Yes (Other)
  Sender: FDA-Public Use
  Company Number: None

PATIENT
  Age: 33 Year
  Sex: Female

DRUGS (4)
  1. CANNABIDIOL\HERBALS [Suspect]
     Active Substance: CANNABIDIOL\HERBALS
     Indication: Anxiety
     Route: 048
     Dates: start: 20220622, end: 20220622
  2. UNSPECIFIED INGREDIENT [Concomitant]
     Active Substance: UNSPECIFIED INGREDIENT
  3. VITAMIN C [Concomitant]
     Active Substance: ASCORBIC ACID
  4. VITAMIN B [Concomitant]
     Active Substance: VITAMIN B

REACTIONS (6)
  - Hypoaesthesia oral [None]
  - Vomiting [None]
  - Gait disturbance [None]
  - Skin tightness [None]
  - Loss of consciousness [None]
  - Unresponsive to stimuli [None]

NARRATIVE: CASE EVENT DATE: 20220626
